FAERS Safety Report 21059147 (Version 5)
Quarter: 2022Q4

REPORT INFORMATION
  Report Type: Spontaneous
  Country: US (occurrence: US)
  Receive Date: 20220708
  Receipt Date: 20221110
  Transmission Date: 20230113
  Serious: No
  Sender: FDA-Public Use
  Company Number: US-PFIZER INC-PV202200017930

PATIENT
  Age: 76 Year
  Sex: Female

DRUGS (1)
  1. IBRANCE [Suspect]
     Active Substance: PALBOCICLIB
     Dosage: UNK

REACTIONS (8)
  - Dizziness [Unknown]
  - Fatigue [Recovering/Resolving]
  - Contusion [Unknown]
  - Lethargy [Recovered/Resolved]
  - Fall [Unknown]
  - Swelling [Unknown]
  - Anaemia [Unknown]
  - Haemoglobin decreased [Unknown]
